FAERS Safety Report 9068462 (Version 1)
Quarter: 2013Q1

REPORT INFORMATION
  Report Type: Spontaneous
  Country: US (occurrence: US)
  Receive Date: 20130128
  Receipt Date: 20130128
  Transmission Date: 20140127
  Serious: Yes (Death)
  Sender: FDA-Public Use
  Company Number: PHHY2013US007007

PATIENT
  Age: 53 Year
  Sex: Female

DRUGS (3)
  1. THEOPHYLLINE [Suspect]
     Indication: ASTHMA
  2. AMLODIPINE [Suspect]
     Indication: ASTHMA
  3. CHARCOAL [Suspect]
     Indication: ASTHMA

REACTIONS (2)
  - Medication error [Fatal]
  - Drug level increased [Unknown]
